FAERS Safety Report 22333205 (Version 1)
Quarter: 2023Q2

REPORT INFORMATION
  Report Type: Spontaneous
  Country: US (occurrence: None)
  Receive Date: 20230516
  Receipt Date: 20230516
  Transmission Date: 20230721
  Serious: Yes (unspecified)
  Sender: FDA-Public Use
  Company Number: None

PATIENT
  Age: 49 Year
  Sex: Female
  Weight: 92.53 kg

DRUGS (1)
  1. LEMBOREXANT [Suspect]
     Active Substance: LEMBOREXANT
     Dosage: FREQUENCY : DAILY;?

REACTIONS (2)
  - Anger [None]
  - Suicidal ideation [None]

NARRATIVE: CASE EVENT DATE: 20230515
